FAERS Safety Report 14198182 (Version 1)
Quarter: 2017Q4

REPORT INFORMATION
  Report Type: Report from Study
  Country: US (occurrence: US)
  Receive Date: 20171117
  Receipt Date: 20171117
  Transmission Date: 20180321
  Serious: Yes (Death, Hospitalization)
  Sender: FDA-Public Use
  Company Number: US-TORRENT-00004343

PATIENT
  Age: 37 Year
  Sex: Female

DRUGS (6)
  1. DIAZEPAM. [Suspect]
     Active Substance: DIAZEPAM
     Indication: PRODUCT USED FOR UNKNOWN INDICATION
     Dosage: INGESTION PLUS UNKNOWN
  2. CITALOPRAM [Suspect]
     Active Substance: CITALOPRAM HYDROBROMIDE
     Indication: PRODUCT USED FOR UNKNOWN INDICATION
     Dosage: INGESTION PLUS UNKNOWN
  3. CLONAZEPAM. [Suspect]
     Active Substance: CLONAZEPAM
     Indication: PRODUCT USED FOR UNKNOWN INDICATION
     Dosage: INGESTION PLUS UNKNOWN
  4. MARIJUANA [Suspect]
     Active Substance: CANNABIS SATIVA SUBSP. INDICA TOP
     Indication: PRODUCT USED FOR UNKNOWN INDICATION
     Dosage: INGESTION PLUS UNKNOWN
  5. MORPHINE [Suspect]
     Active Substance: MORPHINE
     Indication: PRODUCT USED FOR UNKNOWN INDICATION
     Dosage: INGESTION PLUS UNKNOWN
  6. LAMOTRIGINE. [Suspect]
     Active Substance: LAMOTRIGINE
     Indication: PRODUCT USED FOR UNKNOWN INDICATION
     Dosage: INGESTION PLUS UNKNOWN

REACTIONS (3)
  - Intentional product misuse [Fatal]
  - Toxicity to various agents [Fatal]
  - Cardio-respiratory arrest [Fatal]
